FAERS Safety Report 19003806 (Version 2)
Quarter: 2021Q2

REPORT INFORMATION
  Report Type: Report from Study
  Country: US (occurrence: US)
  Receive Date: 20210312
  Receipt Date: 20210422
  Transmission Date: 20210717
  Serious: Yes (Death)
  Sender: FDA-Public Use
  Company Number: US-BAUSCH-BL-2021-008574

PATIENT
  Age: 75 Year
  Sex: Male

DRUGS (1)
  1. XIFAXAN [Suspect]
     Active Substance: RIFAXIMIN
     Indication: AMMONIA ABNORMAL
     Dosage: STARTED 2 YEARS PRIOR TO THE REPORT
     Route: 065
     Dates: start: 2019

REACTIONS (2)
  - Illness [Unknown]
  - Hepatic cancer [Fatal]

NARRATIVE: CASE EVENT DATE: 202102
